FAERS Safety Report 14424021 (Version 3)
Quarter: 2021Q1

REPORT INFORMATION
  Report Type: Spontaneous
  Country: GB (occurrence: GB)
  Receive Date: 20180123
  Receipt Date: 20210114
  Transmission Date: 20210419
  Serious: Yes (Disabling, Other)
  Sender: FDA-Public Use
  Company Number: PHHY2018GB004725

PATIENT
  Sex: Female

DRUGS (2)
  1. METFORMIN [Suspect]
     Active Substance: METFORMIN HYDROCHLORIDE
     Indication: DIABETES MELLITUS
     Dosage: 1 DF, QW3 (UNSPECIFIED)
     Route: 065
  2. METFORMIN [Suspect]
     Active Substance: METFORMIN HYDROCHLORIDE
     Dosage: 3 DF, UNK
     Route: 065

REACTIONS (6)
  - Malaise [Unknown]
  - Eye movement disorder [Unknown]
  - Paraesthesia oral [Unknown]
  - Skin discolouration [Unknown]
  - Arthralgia [Unknown]
  - Back pain [Unknown]
